FAERS Safety Report 7489928-6 (Version None)
Quarter: 2011Q2

REPORT INFORMATION
  Report Type: 
  Country: None (occurrence: None)
  Receive Date: 20110512
  Receipt Date: 20110401
  Transmission Date: 20111010
  Serious: Yes (Other)
  Sender: FDA-Public Use
  Company Number: 030783

PATIENT
  Sex: Female

DRUGS (4)
  1. METHOTREXATE [Suspect]
     Dates: start: 20110101
  2. PREDNISOLONE [Suspect]
     Dosage: (15 MG)
     Dates: start: 20110101
  3. FOLIC ACID [Suspect]
     Dates: start: 20110101
  4. NEUPRO [Suspect]
     Indication: RESTLESS LEGS SYNDROME
     Dosage: (2MG/24HR)
     Dates: start: 20100301

REACTIONS (3)
  - RESTLESS LEGS SYNDROME [None]
  - MUSCULOSKELETAL DISORDER [None]
  - CONDITION AGGRAVATED [None]
